FAERS Safety Report 7971579-8 (Version None)
Quarter: 2011Q4

REPORT INFORMATION
  Report Type: 
  Country: None (occurrence: None)
  Receive Date: 20111209
  Receipt Date: 20111209
  Transmission Date: 20120403
  Serious: No
  Sender: FDA-Public Use
  Company Number: None

PATIENT
  Age: 49 Year
  Sex: Male
  Weight: 99.2 kg

DRUGS (1)
  1. LISINOPRIL AND HYDROCHLOROTHIAZIDE [Suspect]
     Indication: HYPERTENSION
     Dosage: 1/2 TAB EVERY DAY PO
     Route: 048
     Dates: start: 20090901, end: 20100111

REACTIONS (6)
  - DYSPNOEA [None]
  - ANGIOEDEMA [None]
  - RASH [None]
  - ABDOMINAL DISTENSION [None]
  - URTICARIA [None]
  - OROPHARYNGEAL BLISTERING [None]
